FAERS Safety Report 7967776-8 (Version None)
Quarter: 2011Q4

REPORT INFORMATION
  Report Type: 
  Country: None (occurrence: None)
  Receive Date: 20111207
  Receipt Date: 20111122
  Transmission Date: 20120403
  Serious: Yes (Other)
  Sender: FDA-Public Use
  Company Number: 2011-4773

PATIENT
  Sex: Female

DRUGS (1)
  1. DYSPORT [Suspect]
     Indication: SKIN COSMETIC PROCEDURE
     Dosage: NOT REPORTED, SINGLE CYCLE, UNKNOWN
     Dates: start: 20110518, end: 20110518

REACTIONS (3)
  - ROTATOR CUFF SYNDROME [None]
  - FACIAL BONES FRACTURE [None]
  - FALL [None]
